FAERS Safety Report 7073446-3 (Version None)
Quarter: 2010Q4

REPORT INFORMATION
  Report Type: 
  Country: None (occurrence: None)
  Receive Date: 20101029
  Receipt Date: 20100618
  Transmission Date: 20110411
  Serious: Yes (Other)
  Sender: FDA-Public Use
  Company Number: A0866108A

PATIENT
  Sex: Female

DRUGS (7)
  1. ADVAIR DISKUS 100/50 [Suspect]
     Indication: ASTHMA
     Dosage: 1PUFF TWICE PER DAY
     Route: 055
     Dates: start: 20090101, end: 20090101
  2. FLONASE [Suspect]
     Dosage: 2SPR PER DAY
     Route: 045
     Dates: start: 20080601
  3. ATENOLOL [Concomitant]
  4. BLOOD PRESSURE MEDICATION [Concomitant]
  5. ALBUTEROL [Concomitant]
  6. ASPIRIN [Concomitant]
  7. FLONASE [Concomitant]

REACTIONS (5)
  - ASTHMA [None]
  - CATARACT [None]
  - DRUG INEFFECTIVE [None]
  - HEADACHE [None]
  - NAUSEA [None]
